FAERS Safety Report 24131605 (Version 2)
Quarter: 2024Q3

REPORT INFORMATION
  Report Type: Report from Study
  Country: AU (occurrence: AU)
  Receive Date: 20240724
  Receipt Date: 20240730
  Transmission Date: 20241017
  Serious: Yes (Other)
  Sender: PERRIGO
  Company Number: AU-PERRIGO-24AU006709

PATIENT
  Age: 30 Year
  Sex: Female
  Weight: 55 kg

DRUGS (2)
  1. ULIPRISTAL ACETATE [Suspect]
     Active Substance: ULIPRISTAL ACETATE
     Indication: Product used for unknown indication
     Dosage: UNK
     Route: 065
     Dates: start: 20240528, end: 20240528
  2. ZOPICLONE [Concomitant]
     Active Substance: ZOPICLONE
     Indication: Insomnia
     Dosage: 1 DOSAGE FORM, QD; USED THROUGHOUT PREGNANCY
     Route: 048

REACTIONS (2)
  - Ectopic pregnancy [Recovered/Resolved]
  - Pregnancy after post coital contraception [Recovered/Resolved]

NARRATIVE: CASE EVENT DATE: 20240709
